FAERS Safety Report 4415659-2 (Version None)
Quarter: 2004Q2

REPORT INFORMATION
  Report Type: 
  Country: None (occurrence: None)
  Receive Date: 20040628
  Receipt Date: 20031110
  Transmission Date: 20050107
  Serious: Yes (Other)
  Sender: FDA-Public Use
  Company Number: 351471

PATIENT
  Sex: Female
  Weight: 54.4 kg

DRUGS (1)
  1. CELLCEPT [Suspect]
     Indication: GLOMERULONEPHRITIS FOCAL
     Dosage: 1000 MG ORAL
     Route: 048
     Dates: start: 20030826, end: 20031112

REACTIONS (1)
  - ALOPECIA [None]
